FAERS Safety Report 5156876-6 (Version None)
Quarter: 2006Q4

REPORT INFORMATION
  Report Type: 
  Country: None (occurrence: None)
  Receive Date: 20061115
  Receipt Date: 20061102
  Transmission Date: 20070319
  Serious: Yes (Other)
  Sender: FDA-Public Use
  Company Number: VNL_0283_2006

PATIENT
  Age: 67 Year
  Sex: Female

DRUGS (12)
  1. APOKYN [Suspect]
     Indication: PARKINSON'S DISEASE
     Dosage: 0.2 ML SC
     Route: 058
     Dates: start: 20061031, end: 20061101
  2. COUMADIN [Concomitant]
  3. COMTAN [Concomitant]
  4. ARTANE [Concomitant]
  5. SINEMET [Concomitant]
  6. MEVACOR [Concomitant]
  7. PEPCID    /00706001/ [Concomitant]
  8. BUSPAR [Concomitant]
  9. LISINOPRIL [Concomitant]
  10. INDAPAMIDE [Concomitant]
  11. IMIPRAMINE [Concomitant]
  12. ZOLOFT    /01022401/ [Concomitant]

REACTIONS (5)
  - DRUG HYPERSENSITIVITY [None]
  - DRY MOUTH [None]
  - DYSGEUSIA [None]
  - DYSPNOEA [None]
  - PANIC ATTACK [None]
